FAERS Safety Report 10549383 (Version 5)
Quarter: 2014Q4

REPORT INFORMATION
  Report Type: Spontaneous
  Country: US (occurrence: US)
  Receive Date: 20141028
  Receipt Date: 20141211
  Transmission Date: 20150529
  Serious: Yes (Life-Threatening, Hospitalization)
  Sender: FDA-Public Use
  Company Number: CHPA2014US014210

PATIENT
  Age: 62 Year
  Sex: Female

DRUGS (1)
  1. GAS-X [Suspect]
     Active Substance: DIMETHICONE
     Indication: ABDOMINAL DISTENSION
     Dosage: 1 DF, QD
     Route: 048
     Dates: start: 20141007, end: 20141015

REACTIONS (14)
  - Loss of consciousness [Recovered/Resolved]
  - Gastric haemorrhage [Recovering/Resolving]
  - Blood pressure decreased [Recovering/Resolving]
  - Diarrhoea [Recovering/Resolving]
  - Haematochezia [Recovering/Resolving]
  - Feeling abnormal [Recovered/Resolved]
  - Pharyngeal oedema [Recovering/Resolving]
  - Hypoaesthesia oral [Recovering/Resolving]
  - Laryngeal pain [Recovering/Resolving]
  - Heart rate increased [Recovering/Resolving]
  - Swollen tongue [Recovering/Resolving]
  - Abnormal faeces [Recovering/Resolving]
  - Hyperhidrosis [Recovering/Resolving]
  - Vomiting [Recovering/Resolving]

NARRATIVE: CASE EVENT DATE: 20141015
